FAERS Safety Report 20865954 (Version 1)
Quarter: 2022Q2

REPORT INFORMATION
  Report Type: Spontaneous
  Country: US (occurrence: US)
  Receive Date: 20220524
  Receipt Date: 20220524
  Transmission Date: 20220721
  Serious: No
  Sender: FDA-Public Use
  Company Number: US-ELI_LILLY_AND_COMPANY-US202205009958

PATIENT

DRUGS (1)
  1. BAQSIMI [Suspect]
     Active Substance: GLUCAGON
     Indication: Hypoglycaemia
     Dosage: UNK UNK, UNKNOWN
     Route: 065

REACTIONS (1)
  - Headache [Recovered/Resolved]

NARRATIVE: CASE EVENT DATE: 20220520
